FAERS Safety Report 10305882 (Version 1)
Quarter: 2014Q3

REPORT INFORMATION
  Report Type: Spontaneous
  Country: ES (occurrence: ES)
  Receive Date: 20140715
  Receipt Date: 20140715
  Transmission Date: 20150326
  Serious: Yes (Other)
  Sender: FDA-Public Use
  Company Number: ES-SHIRE-ES201403839

PATIENT

DRUGS (2)
  1. MEZAVANT [Suspect]
     Active Substance: MESALAMINE
     Dosage: UNK
     Route: 048
  2. MEZAVANT [Suspect]
     Active Substance: MESALAMINE
     Indication: PRODUCT USED FOR UNKNOWN INDICATION
     Dosage: 4.8 G, UNKNOWN
     Route: 048

REACTIONS (1)
  - Cholestasis [Unknown]
